FAERS Safety Report 15204354 (Version 1)
Quarter: 2018Q3

REPORT INFORMATION
  Report Type: Report from Study
  Country: BR (occurrence: BR)
  Receive Date: 20180726
  Receipt Date: 20180726
  Transmission Date: 20181010
  Serious: Yes (Other)
  Sender: FDA-Public Use
  Company Number: BR-JNJFOC-20180726343

PATIENT
  Age: 0 Year

DRUGS (2)
  1. PREDNISONE. [Concomitant]
     Active Substance: PREDNISONE
     Route: 065
  2. INFLIXIMAB, RECOMBINANT [Suspect]
     Active Substance: INFLIXIMAB
     Indication: ANKYLOSING SPONDYLITIS
     Dosage: PARENT DOSING
     Route: 042
     Dates: start: 201610, end: 201710

REACTIONS (2)
  - Foetal exposure during pregnancy [Recovered/Resolved]
  - Premature baby [Not Recovered/Not Resolved]

NARRATIVE: CASE EVENT DATE: 201709
